FAERS Safety Report 10759328 (Version 17)
Quarter: 2016Q1

REPORT INFORMATION
  Report Type: Report from Study
  Country: BE (occurrence: BE)
  Receive Date: 20150203
  Receipt Date: 20160107
  Transmission Date: 20160525
  Serious: Yes (Death, Hospitalization, Other)
  Sender: FDA-Public Use
  Company Number: BE-ABBVIE-14P-013-1262100-00

PATIENT
  Age: 61 Year
  Sex: Male

DRUGS (7)
  1. DUODOPA [Suspect]
     Active Substance: CARBIDOPA\LEVODOPA
     Dosage: AM=2ML; CD=4ML/HR DURING 16HRS;ED=1.1ML; ND=1.5ML/HR DURING 8HRS
     Route: 050
     Dates: start: 20150915
  2. DUODOPA [Suspect]
     Active Substance: CARBIDOPA\LEVODOPA
     Dosage: UNKNOWN
     Route: 050
     Dates: end: 20150915
  3. DUODOPA [Suspect]
     Active Substance: CARBIDOPA\LEVODOPA
     Indication: PARKINSON^S DISEASE
     Dosage: AM  6 ML, CD 2.2 ML/H DURING 16H, ED 1 ML
     Route: 050
     Dates: start: 20121220, end: 20121224
  4. DUODOPA [Suspect]
     Active Substance: CARBIDOPA\LEVODOPA
     Dosage: DOSE CONTINUOUSLY MONITORED AND ADAPTED
     Route: 050
     Dates: start: 20121224, end: 20140417
  5. DUODOPA [Suspect]
     Active Substance: CARBIDOPA\LEVODOPA
     Dosage: AM DOSE=2ML, CD=3.7ML/H FOR 16HRS AND ED=1ML
     Route: 050
     Dates: start: 20141231, end: 20150417
  6. DUODOPA [Suspect]
     Active Substance: CARBIDOPA\LEVODOPA
     Dosage: AM 1 ML, CD 3.5 ML/H DURING 16H, ED 1.5ML, ND 1.5 ML/H DURING 8H
     Route: 050
     Dates: start: 20140417, end: 20141231
  7. DUODOPA [Suspect]
     Active Substance: CARBIDOPA\LEVODOPA
     Route: 050
     Dates: start: 20150501

REACTIONS (19)
  - Euthanasia [Fatal]
  - Wheelchair user [Not Recovered/Not Resolved]
  - Bronchitis [Unknown]
  - Dyskinesia [Recovered/Resolved]
  - Pneumonia [Recovering/Resolving]
  - Asthenia [Not Recovered/Not Resolved]
  - Mobility decreased [Unknown]
  - Muscle rigidity [Unknown]
  - Dysphagia [Not Recovered/Not Resolved]
  - Hypophagia [Not Recovered/Not Resolved]
  - Medical device removal [Recovered/Resolved]
  - Dysphonia [Recovering/Resolving]
  - On and off phenomenon [Unknown]
  - Aphasia [Not Recovered/Not Resolved]
  - General physical health deterioration [Unknown]
  - Device connection issue [Unknown]
  - Device dislocation [Unknown]
  - Wound [Unknown]
  - Device occlusion [Unknown]

NARRATIVE: CASE EVENT DATE: 20160105
